FAERS Safety Report 7942712-9 (Version None)
Quarter: 2011Q4

REPORT INFORMATION
  Report Type: 
  Country: None (occurrence: None)
  Receive Date: 20111128
  Receipt Date: 20111115
  Transmission Date: 20120403
  Serious: Yes (Hospitalization)
  Sender: FDA-Public Use
  Company Number: JP-EISAI INC-E3810-05028-SPO-JP

PATIENT
  Age: 35 Year
  Sex: Male

DRUGS (2)
  1. RABEPRAZOLE SODIUM [Suspect]
     Indication: LARYNGEAL GRANULOMA
     Dosage: UNKNOWN
     Route: 048
     Dates: start: 20110922, end: 20111012
  2. LIZABEN [Suspect]
     Indication: LARYNGEAL GRANULOMA
     Dosage: UNKNOWN
     Route: 065
     Dates: start: 20110922, end: 20111012

REACTIONS (2)
  - HAEMATURIA [None]
  - HEPATIC FUNCTION ABNORMAL [None]
